FAERS Safety Report 5265671-9 (Version None)
Quarter: 2007Q1

REPORT INFORMATION
  Report Type: 
  Country: None (occurrence: None)
  Receive Date: 20061213
  Receipt Date: 20040224
  Transmission Date: 20070707
  Serious: Yes (Other)
  Sender: FDA-Public Use
  Company Number: 2004UW03301

PATIENT
  Age: 67 Year
  Sex: Male
  Weight: 50.8029 kg

DRUGS (1)
  1. IRESSA [Suspect]
     Indication: NON-SMALL CELL LUNG CANCER STAGE IIIB
     Dosage: 250 MG PO
     Route: 048
     Dates: end: 20040201

REACTIONS (2)
  - PLATELET COUNT DECREASED [None]
  - WEIGHT DECREASED [None]
